FAERS Safety Report 23713999 (Version 1)
Quarter: 2024Q2

REPORT INFORMATION
  Report Type: Spontaneous
  Country: CN (occurrence: None)
  Receive Date: 20240405
  Receipt Date: 20240405
  Transmission Date: 20240716
  Serious: Yes (Other)
  Sender: FDA-Public Use
  Company Number: 2024A081602

PATIENT
  Age: 60 Year
  Sex: Female
  Weight: 55 kg

DRUGS (1)
  1. PULMICORT TURBUHALER [Suspect]
     Active Substance: BUDESONIDE
     Indication: Epiglottitis
     Route: 055
     Dates: start: 20210525, end: 20210525

REACTIONS (6)
  - Rash erythematous [Unknown]
  - Pruritus [Unknown]
  - Oedema [Unknown]
  - Dermatitis allergic [Unknown]
  - Food allergy [Unknown]
  - Drug hypersensitivity [Unknown]

NARRATIVE: CASE EVENT DATE: 20210526
